FAERS Safety Report 4536506-4 (Version None)
Quarter: 2004Q4

REPORT INFORMATION
  Report Type: 
  Country: None (occurrence: None)
  Receive Date: 20041223
  Receipt Date: 20041210
  Transmission Date: 20050328
  Serious: Yes (Death, Hospitalization)
  Sender: FDA-Public Use
  Company Number: US-AMGEN-PRA102087

PATIENT
  Sex: Male

DRUGS (13)
  1. ARANESP [Suspect]
     Indication: ANAEMIA OF MALIGNANT DISEASE
     Route: 058
     Dates: start: 20040827, end: 20041117
  2. OXYCONTIN [Concomitant]
  3. OXYCODONE HCL [Concomitant]
  4. OXALIPLATIN [Concomitant]
  5. FLUOROURACIL [Concomitant]
  6. LEUCOVORIN [Concomitant]
  7. DILAUDID [Concomitant]
  8. KADIAN (ALPHARMA) [Concomitant]
  9. LASIX [Concomitant]
  10. MEGACE [Concomitant]
     Dates: start: 20041005
  11. LOVENOX [Concomitant]
     Dates: start: 20040924, end: 20041012
  12. LORTAB [Concomitant]
  13. LOVENOX [Concomitant]
     Dates: start: 20041012

REACTIONS (6)
  - CEREBROVASCULAR ACCIDENT [None]
  - CHEST PAIN [None]
  - HAEMOGLOBIN DECREASED [None]
  - HEPATIC PAIN [None]
  - HYPERHIDROSIS [None]
  - THROMBOEMBOLIC STROKE [None]
